FAERS Safety Report 6234790-2 (Version None)
Quarter: 2009Q2

REPORT INFORMATION
  Report Type: 
  Country: None (occurrence: None)
  Receive Date: 20090618
  Receipt Date: 20090610
  Transmission Date: 20091009
  Serious: Yes (Hospitalization)
  Sender: FDA-Public Use
  Company Number: PHHO2009AU07150

PATIENT
  Sex: Male
  Weight: 121 kg

DRUGS (1)
  1. STI571/CGP57148B T35717+TAB [Suspect]
     Indication: CHRONIC MYELOID LEUKAEMIA
     Dosage: 400 MG, QD
     Route: 048
     Dates: start: 20060724

REACTIONS (3)
  - FACIAL PALSY [None]
  - HEADACHE [None]
  - HYPOAESTHESIA FACIAL [None]
